FAERS Safety Report 8945741 (Version 1)
Quarter: 2012Q4

REPORT INFORMATION
  Report Type: 
  Country: US (occurrence: US)
  Receive Date: 20121205
  Receipt Date: 20121205
  Transmission Date: 20130627
  Serious: Yes (Death)
  Sender: FDA-Public Use
  Company Number: US-PFIZER INC-2012303448

PATIENT
  Age: 80 Year
  Sex: Female

DRUGS (3)
  1. PACLITAXEL [Suspect]
     Indication: OVARIAN CARCINOMA
     Dosage: 135 mg/m2, 24-hr infusion
     Route: 042
     Dates: start: 19940713
  2. CYCLOPHOSPHAMIDE [Concomitant]
     Indication: CYSTADENOCARCINOMA OVARY
     Dosage: Unk, six cycles
  3. CARBOPLATIN [Concomitant]
     Indication: CYSTADENOCARCINOMA OVARY
     Dosage: Unk, six cycles

REACTIONS (1)
  - Large intestine perforation [Fatal]
